FAERS Safety Report 4353372-0 (Version None)
Quarter: 2004Q2

REPORT INFORMATION
  Report Type: 
  Country: None (occurrence: None)
  Receive Date: 20040505
  Receipt Date: 19980605
  Transmission Date: 20050107
  Serious: Yes (Life-Threatening)
  Sender: FDA-Public Use
  Company Number: FR01-09585

PATIENT
  Age: 11 Month
  Sex: Male

DRUGS (9)
  1. FLAGYL [Suspect]
     Indication: CELLULITIS
     Route: 048
     Dates: start: 19980421, end: 19980425
  2. CLAFORAN [Suspect]
     Indication: CELLULITIS
     Route: 042
     Dates: start: 19980421, end: 19980424
  3. DOLIPRANE [Suspect]
     Indication: CELLULITIS
     Route: 048
     Dates: end: 19980429
  4. NIFLURIL [Suspect]
     Indication: CELLULITIS
     Route: 054
     Dates: start: 19980423, end: 19980428
  5. ORBENIN CAP [Suspect]
     Indication: CELLULITIS
     Route: 048
     Dates: start: 19980424, end: 19980429
  6. NETROMYCIN [Suspect]
     Indication: CELLULITIS
     Route: 042
     Dates: start: 19980421, end: 19980425
  7. ACETAMINOPHEN [Suspect]
     Indication: CELLULITIS
     Route: 048
     Dates: end: 19980429
  8. SUFENTA [Concomitant]
     Indication: ANAESTHESIA
  9. SEVOFLURANE [Concomitant]
     Indication: ANAESTHESIA

REACTIONS (1)
  - NEUTROPENIA [None]
